FAERS Safety Report 25594044 (Version 2)
Quarter: 2025Q3

REPORT INFORMATION
  Report Type: Report from Study
  Country: US (occurrence: US)
  Receive Date: 20250723
  Receipt Date: 20250724
  Transmission Date: 20251021
  Serious: Yes (Death)
  Sender: BOEHRINGER INGELHEIM
  Company Number: US-Komodo Health-a23aa0000091VEHAA2

PATIENT
  Age: 66 Year
  Sex: Female

DRUGS (2)
  1. OFEV [Suspect]
     Active Substance: NINTEDANIB
     Indication: Interstitial lung disease
  2. OFEV [Suspect]
     Active Substance: NINTEDANIB
     Dosage: TAKE WITH FOOD
     Dates: start: 20250113

REACTIONS (1)
  - Interstitial lung disease [Fatal]
